FAERS Safety Report 8881103 (Version 1)
Quarter: 2012Q4

REPORT INFORMATION
  Report Type: 
  Country: ES (occurrence: ES)
  Receive Date: 20121031
  Receipt Date: 20121031
  Transmission Date: 20130627
  Serious: Yes (Life-Threatening, Congenital Anomaly)
  Sender: FDA-Public Use
  Company Number: ES-ASTRAZENECA-2012SE81177

PATIENT
  Age: 1 Month
  Sex: Female

DRUGS (3)
  1. SEROQUEL [Suspect]
     Indication: BIPOLAR DISORDER
     Route: 064
  2. ZELDOX [Suspect]
     Indication: BIPOLAR DISORDER
     Route: 064
  3. LAMICTAL [Suspect]
     Indication: BIPOLAR DISORDER
     Route: 064

REACTIONS (3)
  - Ventricular septal defect [Unknown]
  - Congenital emphysema [Unknown]
  - Acute respiratory distress syndrome [Unknown]
